FAERS Safety Report 13861899 (Version 3)
Quarter: 2017Q3

REPORT INFORMATION
  Report Type: Spontaneous
  Country: ZA (occurrence: ZA)
  Receive Date: 20170811
  Receipt Date: 20170824
  Transmission Date: 20171127
  Serious: Yes (Other)
  Sender: FDA-Public Use
  Company Number: PHHY2017ZA117767

PATIENT

DRUGS (3)
  1. DOSTINEX [Suspect]
     Active Substance: CABERGOLINE
     Indication: PRODUCT USED FOR UNKNOWN INDICATION
     Route: 065
  2. PASIREOTIDE [Suspect]
     Active Substance: PASIREOTIDE
     Indication: CUSHING^S SYNDROME
     Dosage: 90 UG, QD
     Route: 058
  3. KETOCONAZOLE. [Suspect]
     Active Substance: KETOCONAZOLE
     Indication: CUSHING^S SYNDROME
     Route: 065

REACTIONS (5)
  - Cortisol increased [Unknown]
  - Surgical failure [Unknown]
  - Drug intolerance [Unknown]
  - Adenoma benign [Unknown]
  - Gastrointestinal disorder [Unknown]
